FAERS Safety Report 14671756 (Version 6)
Quarter: 2018Q3

REPORT INFORMATION
  Report Type: Report from Study
  Country: US (occurrence: US)
  Receive Date: 20180323
  Receipt Date: 20180814
  Transmission Date: 20181010
  Serious: Yes (Hospitalization, Other)
  Sender: FDA-Public Use
  Company Number: PHHY2018US048295

PATIENT
  Age: 24 Year
  Sex: Female
  Weight: 62 kg

DRUGS (36)
  1. CAYSTON [Suspect]
     Active Substance: AZTREONAM
     Dosage: 75 MG, TID
     Route: 048
     Dates: start: 20170227
  2. AZITHROMYCINE [Concomitant]
     Active Substance: AZITHROMYCIN DIHYDRATE
     Indication: PSEUDOMONAS INFECTION
     Dosage: 500 MG, TID
     Route: 048
     Dates: start: 20170321
  3. LEVAQUIN [Concomitant]
     Active Substance: LEVOFLOXACIN
     Indication: SINUS OPERATION
     Dosage: 750 MG, QD
     Route: 048
     Dates: start: 20170321
  4. FLOVENT [Concomitant]
     Active Substance: FLUTICASONE PROPIONATE
     Indication: CYSTIC FIBROSIS
     Dosage: UNK
     Route: 065
     Dates: start: 19920101
  5. IPRATROPIUM [Concomitant]
     Active Substance: IPRATROPIUM
     Indication: BRONCHIECTASIS
     Dosage: UNK
     Route: 065
     Dates: start: 19920101
  6. HYPERSAL [Concomitant]
     Indication: CYSTIC FIBROSIS
     Dosage: UNK
     Route: 065
     Dates: start: 19920101
  7. PULMOZYME [Concomitant]
     Active Substance: DORNASE ALFA
     Dosage: 25 MG, QD
     Route: 055
  8. CAYSTON [Suspect]
     Active Substance: AZTREONAM
     Indication: CYSTIC FIBROSIS
     Dosage: 75 MG, TID
     Route: 048
     Dates: start: 20161130
  9. CAYSTON [Suspect]
     Active Substance: AZTREONAM
     Dosage: 75 MG, TID
     Route: 048
     Dates: start: 20170328, end: 20170620
  10. ORKAMBI [Concomitant]
     Active Substance: IVACAFTOR\LUMACAFTOR
     Dosage: 2 DF (300 MG), BID
     Route: 048
     Dates: start: 20170321
  11. ALBUTEROL. [Concomitant]
     Active Substance: ALBUTEROL
     Indication: BRONCHIECTASIS
     Dosage: UNK
     Route: 065
     Dates: start: 19920101
  12. ALBUTEROL. [Concomitant]
     Active Substance: ALBUTEROL
     Dosage: 25 MG, BID
     Route: 055
     Dates: start: 20170321, end: 20170528
  13. FLUOXETINE [Concomitant]
     Active Substance: FLUOXETINE HYDROCHLORIDE
     Indication: OBSESSIVE-COMPULSIVE DISORDER
     Dosage: UNK
     Route: 065
     Dates: start: 20150101
  14. CAYSTON [Concomitant]
     Active Substance: AZTREONAM
     Indication: PSEUDOMONAS INFECTION
     Dosage: UNK
     Route: 065
     Dates: start: 20120101
  15. PULMOZYME [Concomitant]
     Active Substance: DORNASE ALFA
     Dosage: 25 MG, QD
     Route: 055
     Dates: start: 20170525, end: 20170528
  16. TOBI [Concomitant]
     Active Substance: TOBRAMYCIN
     Dosage: 200 MG, BID
     Route: 048
     Dates: start: 20170322, end: 20170327
  17. ORKAMBI [Concomitant]
     Active Substance: IVACAFTOR\LUMACAFTOR
     Indication: CYSTIC FIBROSIS
     Dosage: UNK
     Route: 065
     Dates: start: 20150101
  18. PATANASE [Concomitant]
     Active Substance: OLOPATADINE HYDROCHLORIDE
     Indication: SINUSITIS
     Dosage: UNK
     Route: 065
     Dates: start: 20150101
  19. AZITROMYCIN [Concomitant]
     Active Substance: AZITHROMYCIN ANHYDROUS
     Indication: PSEUDOMONAS INFECTION
     Dosage: UNK
     Route: 065
     Dates: start: 20120101
  20. VITAMIIN A [Concomitant]
     Indication: SUPPLEMENTATION THERAPY
     Dosage: UNK
     Route: 065
     Dates: start: 20150101
  21. PULMICORT TURBUHALER [Concomitant]
     Active Substance: BUDESONIDE
     Indication: SINUSITIS
     Dosage: UNK
     Route: 065
     Dates: start: 20051110
  22. TOBI [Suspect]
     Active Substance: TOBRAMYCIN
     Indication: PSEUDOMONAS INFECTION
     Dosage: 300 MG, BID
     Route: 065
     Dates: start: 20170101, end: 20170128
  23. OMEPRAZOLE. [Concomitant]
     Active Substance: OMEPRAZOLE
     Indication: GASTROOESOPHAGEAL REFLUX DISEASE
     Dosage: UNK
     Route: 065
     Dates: start: 20150101
  24. ERGOCALCIFEROL. [Concomitant]
     Active Substance: ERGOCALCIFEROL
     Indication: SUPPLEMENTATION THERAPY
     Dosage: UNK
     Route: 065
     Dates: start: 20150101
  25. PULMOZYME [Concomitant]
     Active Substance: DORNASE ALFA
     Indication: CYSTIC FIBROSIS
     Dosage: UNK
     Route: 065
     Dates: start: 19930101
  26. FLONASE [Concomitant]
     Active Substance: FLUTICASONE PROPIONATE
     Indication: SINUSITIS
     Dosage: UNK
     Route: 065
     Dates: start: 20150101
  27. FLONASE [Concomitant]
     Active Substance: FLUTICASONE PROPIONATE
     Dosage: 100 MG, QD
     Route: 045
     Dates: start: 20170321
  28. PULMICORT TURBUHALER [Concomitant]
     Active Substance: BUDESONIDE
     Indication: SINUSITIS
  29. LEVOCETIRIZINE [Concomitant]
     Active Substance: LEVOCETIRIZINE
     Indication: SINUSITIS
     Dosage: UNK
     Route: 065
     Dates: start: 20160201
  30. TOBI [Concomitant]
     Active Substance: TOBRAMYCIN
     Indication: PSEUDOMONAS INFECTION
     Dosage: UNK
     Route: 065
     Dates: start: 20120101
  31. TOBI [Suspect]
     Active Substance: TOBRAMYCIN
     Indication: CYSTIC FIBROSIS
     Dosage: UNK
     Route: 065
     Dates: start: 20161001, end: 20161028
  32. MIRALAX [Concomitant]
     Active Substance: POLYETHYLENE GLYCOL 3350
     Indication: CONSTIPATION
     Dosage: UNK
     Route: 065
     Dates: start: 20150101
  33. MONTELUKAST [Concomitant]
     Active Substance: MONTELUKAST SODIUM
     Indication: SINUSITIS
     Dosage: UNK
     Route: 065
     Dates: start: 20150101
  34. TOBI [Suspect]
     Active Substance: TOBRAMYCIN
     Dosage: 300 MG, BID
     Route: 065
     Dates: start: 20170228
  35. LEVAQUIN [Concomitant]
     Active Substance: LEVOFLOXACIN
     Indication: SINUS DISORDER
     Dosage: UNK
     Route: 065
     Dates: start: 20170113, end: 20170120
  36. CREON [Concomitant]
     Active Substance: PANCRELIPASE AMYLASE\PANCRELIPASE LIPASE\PANCRELIPASE PROTEASE
     Indication: PANCREATIC FAILURE
     Dosage: UNK
     Route: 065
     Dates: start: 20150101

REACTIONS (16)
  - Infective pulmonary exacerbation of cystic fibrosis [Recovered/Resolved]
  - Decreased appetite [Unknown]
  - Osteoarthritis [Unknown]
  - Haemoptysis [Unknown]
  - Pain [Unknown]
  - Cough [Unknown]
  - Sputum increased [Unknown]
  - Infective pulmonary exacerbation of cystic fibrosis [Recovered/Resolved]
  - Sputum discoloured [Unknown]
  - Chills [Unknown]
  - Sinus congestion [Unknown]
  - Haemoptysis [Recovered/Resolved]
  - Pyrexia [Unknown]
  - Chronic sinusitis [Recovered/Resolved]
  - Myalgia [Unknown]
  - Infective pulmonary exacerbation of cystic fibrosis [Recovered/Resolved]

NARRATIVE: CASE EVENT DATE: 20161019
